FAERS Safety Report 9127536 (Version 2)
Quarter: 2013Q1

REPORT INFORMATION
  Report Type: Spontaneous
  Country: US (occurrence: US)
  Receive Date: 20130122
  Receipt Date: 20130330
  Transmission Date: 20140127
  Serious: Yes (Other)
  Sender: FDA-Public Use
  Company Number: US-TEVA-381465USA

PATIENT
  Age: 66 Year
  Sex: Male
  Weight: 65.83 kg

DRUGS (5)
  1. AZILECT [Suspect]
     Indication: PARKINSON^S DISEASE
     Dosage: 1 MILLIGRAM DAILY;
     Route: 048
     Dates: start: 2007
  2. CARBIDOPA W/LEVODOPA [Concomitant]
     Indication: PARKINSON^S DISEASE
     Dosage: 75 MG/300 MG
     Route: 048
  3. SIMVASTATIN [Concomitant]
     Indication: BLOOD CHOLESTEROL
     Dosage: 10 MILLIGRAM DAILY;
     Route: 048
  4. LANTUS [Concomitant]
     Indication: DIABETES MELLITUS
     Dosage: 16 UNITS
     Route: 058
  5. NOVOLOG [Concomitant]
     Indication: DIABETES MELLITUS
     Route: 058

REACTIONS (2)
  - Hernia repair [Recovered/Resolved]
  - Weight decreased [Recovered/Resolved]
